FAERS Safety Report 15616094 (Version 1)
Quarter: 2018Q4

REPORT INFORMATION
  Report Type: Spontaneous
  Country: US (occurrence: US)
  Receive Date: 20181114
  Receipt Date: 20181114
  Transmission Date: 20190205
  Serious: Yes (Hospitalization, Other)
  Sender: FDA-Public Use
  Company Number: US-TEVA-2018-US-974270

PATIENT
  Age: 60 Year
  Sex: Male

DRUGS (21)
  1. MYCOPHENOLIC ACID. [Suspect]
     Active Substance: MYCOPHENOLIC ACID
     Indication: IMMUNOSUPPRESSION
     Dosage: 2160 MILLIGRAM DAILY;
     Route: 048
  2. PROBENECID. [Concomitant]
     Active Substance: PROBENECID
     Dosage: 2 HOURS AND 8 HOURS AFTER CIDOFOVIR ADMINISTRATION
     Route: 048
  3. AZATHIOPRINE. [Suspect]
     Active Substance: AZATHIOPRINE
     Indication: IMMUNOSUPPRESSION
     Route: 065
  4. FOSCARNET [Suspect]
     Active Substance: FOSCARNET
     Indication: CYTOMEGALOVIRUS VIRAEMIA
     Route: 042
  5. LEFLUNOMIDE. [Concomitant]
     Active Substance: LEFLUNOMIDE
     Indication: CYTOMEGALOVIRUS VIRAEMIA
     Dosage: 100 MILLIGRAM DAILY;
     Route: 048
  6. ATOVAQUONE. [Concomitant]
     Active Substance: ATOVAQUONE
     Indication: ANTIFUNGAL PROPHYLAXIS
     Route: 065
  7. VALGANCICLOVIR HYDROCHLORIDE. [Suspect]
     Active Substance: VALGANCICLOVIR HYDROCHLORIDE
     Indication: ANTIVIRAL PROPHYLAXIS
     Dosage: 450 MILLIGRAM DAILY;
     Route: 048
  8. CYCLOSPORINE. [Suspect]
     Active Substance: CYCLOSPORINE
     Indication: IMMUNOSUPPRESSION
     Route: 065
  9. PREDNISONE. [Suspect]
     Active Substance: PREDNISONE
     Indication: IMMUNOSUPPRESSION
     Dosage: 10 MILLIGRAM DAILY;
     Route: 048
  10. BASILIXIMAB [Suspect]
     Active Substance: BASILIXIMAB
     Indication: IMMUNOSUPPRESSION
     Route: 065
  11. CIDOFOVIR. [Suspect]
     Active Substance: CIDOFOVIR
     Indication: CYTOMEGALOVIRUS VIRAEMIA
     Route: 042
  12. FOSCARNET [Suspect]
     Active Substance: FOSCARNET
     Indication: CYTOMEGALOVIRUS VIRAEMIA
     Dosage: 60 MILLIGRAM DAILY;
     Route: 042
  13. PROBENECID. [Concomitant]
     Active Substance: PROBENECID
     Dosage: 3 HOURS PRIOR TO CIDOFOVIR
     Route: 048
  14. TACROLIMUS. [Suspect]
     Active Substance: TACROLIMUS
     Indication: IMMUNOSUPPRESSION
     Route: 065
  15. IMMUNE GLOBULIN [Concomitant]
     Active Substance: HUMAN IMMUNOGLOBULIN G
     Indication: CYTOMEGALOVIRUS VIRAEMIA
     Route: 042
  16. SIROLIMUS. [Suspect]
     Active Substance: SIROLIMUS
     Dosage: .5 MILLIGRAM DAILY;
     Route: 048
  17. SULFAMETHOXAZOLE-TRIMETHOPRIM [Concomitant]
     Active Substance: SULFAMETHOXAZOLE\TRIMETHOPRIM
     Indication: ANTIBIOTIC PROPHYLAXIS
     Dosage: 400MG-SULFAMETHOXAZOLE AND 80MG-TRIMETHOPRIM THREE TIMES WEEKLY
     Route: 048
  18. PREDNISONE. [Suspect]
     Active Substance: PREDNISONE
     Indication: IMMUNOSUPPRESSION
     Route: 048
  19. MYCOPHENOLIC ACID. [Suspect]
     Active Substance: MYCOPHENOLIC ACID
     Indication: IMMUNOSUPPRESSION
     Route: 048
  20. LETERMOVIR [Suspect]
     Active Substance: LETERMOVIR
     Indication: ANTIVIRAL PROPHYLAXIS
     Dosage: 480 MILLIGRAM DAILY;
     Route: 048
  21. GANCICLOVIR. [Suspect]
     Active Substance: GANCICLOVIR
     Indication: CYTOMEGALOVIRUS VIRAEMIA
     Dosage: 10 MG/KG DAILY;
     Route: 042

REACTIONS (9)
  - Iridocyclitis [Unknown]
  - Hypomagnesaemia [Unknown]
  - Off label use [Recovering/Resolving]
  - Virologic failure [Unknown]
  - Acute kidney injury [Not Recovered/Not Resolved]
  - Cytomegalovirus viraemia [Recovered/Resolved]
  - Pancytopenia [Recovered/Resolved]
  - Oedema peripheral [Recovering/Resolving]
  - Pathogen resistance [Unknown]
